FAERS Safety Report 6173550-8 (Version None)
Quarter: 2009Q2

REPORT INFORMATION
  Report Type: 
  Country: None (occurrence: None)
  Receive Date: 20090430
  Receipt Date: 20090423
  Transmission Date: 20091009
  Serious: Yes (Life-Threatening)
  Sender: FDA-Public Use
  Company Number: B0571407A

PATIENT
  Sex: Male

DRUGS (6)
  1. ULTIVA [Suspect]
     Route: 042
     Dates: start: 20090127, end: 20090127
  2. AUGMENTIN '125' [Suspect]
     Indication: PROPHYLAXIS
     Dosage: 2G PER DAY
     Route: 042
     Dates: start: 20090127, end: 20090127
  3. XYLOCAINE [Suspect]
     Route: 048
     Dates: start: 20090127, end: 20090127
  4. DIPRIVAN [Suspect]
     Route: 042
     Dates: start: 20090127, end: 20090127
  5. METHYLPREDNISOLONE 4MG TAB [Concomitant]
     Route: 042
  6. ZANIDIP [Concomitant]
     Route: 065

REACTIONS (5)
  - BRONCHOSPASM [None]
  - CIRCULATORY COLLAPSE [None]
  - PCO2 DECREASED [None]
  - RASH [None]
  - SHOCK [None]
